FAERS Safety Report 9432076 (Version 2)
Quarter: 2013Q3

REPORT INFORMATION
  Report Type: Spontaneous
  Country: US (occurrence: US)
  Receive Date: 20130731
  Receipt Date: 20130813
  Transmission Date: 20140515
  Serious: No
  Sender: FDA-Public Use
  Company Number: US-PFIZER INC-2013218682

PATIENT
  Age: 85 Year
  Sex: Male
  Weight: 100 kg

DRUGS (3)
  1. ADVIL PM [Suspect]
     Indication: INSOMNIA
     Dosage: UNK, DAILY
     Dates: start: 2013
  2. AMLODIPINE [Concomitant]
     Indication: HYPERTENSION
     Dosage: 45 MG, DAILY
  3. AMILORIDE [Concomitant]
     Indication: HYPERTENSION
     Dosage: UNK, TWO TIMES A DAY

REACTIONS (1)
  - Drug ineffective [Unknown]
